FAERS Safety Report 6364657-0 (Version None)
Quarter: 2009Q3

REPORT INFORMATION
  Report Type: 
  Country: None (occurrence: None)
  Receive Date: 20090919
  Receipt Date: 20090723
  Transmission Date: 20100115
  Serious: No
  Sender: FDA-Public Use
  Company Number: US-ABBOTT-09P-163-0587835-00

PATIENT
  Sex: Female
  Weight: 96.248 kg

DRUGS (9)
  1. HUMIRA [Suspect]
     Indication: RHEUMATOID ARTHRITIS
     Route: 058
     Dates: start: 20080101, end: 20080101
  2. HUMIRA [Suspect]
     Route: 058
     Dates: start: 20090101, end: 20090701
  3. HUMIRA [Suspect]
     Route: 058
     Dates: start: 20090701
  4. KLOR-CON [Concomitant]
     Indication: DRUG USE FOR UNKNOWN INDICATION
  5. ALLOPURINOL [Concomitant]
     Indication: GOUT
  6. METOPROLOL TARTRATE [Concomitant]
     Indication: HYPERTENSION
  7. METOPROLOL TARTRATE [Concomitant]
     Indication: CARDIAC DISORDER
  8. OMEPRAZOLE [Concomitant]
     Indication: DYSPEPSIA
  9. UNKNOWN BLOOD PRESSURE PILL [Concomitant]
     Indication: HYPERTENSION

REACTIONS (5)
  - GLOSSITIS [None]
  - NASOPHARYNGITIS [None]
  - ORAL INFECTION [None]
  - PAIN [None]
  - TONGUE ERUPTION [None]
